FAERS Safety Report 9392018 (Version 1)
Quarter: 2013Q3

REPORT INFORMATION
  Report Type: Spontaneous
  Country: GB (occurrence: GB)
  Receive Date: 20130709
  Receipt Date: 20130709
  Transmission Date: 20140515
  Serious: Yes (Hospitalization)
  Sender: FDA-Public Use
  Company Number: PHHY2013GB070552

PATIENT
  Age: 83 Year
  Sex: Male

DRUGS (4)
  1. WARFARIN [Suspect]
     Indication: ATRIAL FIBRILLATION
     Dosage: 2 MG, QD
     Route: 048
     Dates: start: 20130516, end: 20130617
  2. ACETYLSALICYLIC ACID [Suspect]
     Dosage: 75 MG, QD
     Route: 048
  3. CLOPIDOGREL [Suspect]
     Dosage: 75 MG, QD
     Route: 048
  4. ALLOPURINOL [Concomitant]

REACTIONS (2)
  - Haemoptysis [Recovered/Resolved]
  - International normalised ratio increased [Recovered/Resolved]
